FAERS Safety Report 15737224 (Version 2)
Quarter: 2019Q1

REPORT INFORMATION
  Report Type: Spontaneous
  Country: RO (occurrence: RO)
  Receive Date: 20181218
  Receipt Date: 20190118
  Transmission Date: 20190417
  Serious: Yes (Death)
  Sender: FDA-Public Use
  Company Number: RO-ASTRAZENECA-2018SF66739

PATIENT
  Age: 61 Year
  Sex: Male

DRUGS (6)
  1. RAMIPRIL. [Concomitant]
     Active Substance: RAMIPRIL
  2. BRILIQUE [Suspect]
     Active Substance: TICAGRELOR
     Indication: MYOCARDIAL INFARCTION
     Route: 048
  3. CRESTOR [Concomitant]
     Active Substance: ROSUVASTATIN CALCIUM
     Dates: start: 201711
  4. BRILIQUE [Suspect]
     Active Substance: TICAGRELOR
     Indication: STENT PLACEMENT
     Route: 048
  5. ATACAND [Concomitant]
     Active Substance: CANDESARTAN CILEXETIL
     Dates: start: 201711
  6. METOPROLOL. [Concomitant]
     Active Substance: METOPROLOL
     Dates: start: 201711

REACTIONS (4)
  - Product use in unapproved indication [Unknown]
  - Cardio-respiratory arrest [Fatal]
  - Off label use [Unknown]
  - Myocardial infarction [Fatal]
